FAERS Safety Report 5193869-7 (Version None)
Quarter: 2006Q4

REPORT INFORMATION
  Report Type: 
  Country: None (occurrence: None)
  Receive Date: 20061228
  Receipt Date: 20061220
  Transmission Date: 20070319
  Serious: Yes (Hospitalization)
  Sender: FDA-Public Use
  Company Number: US-AMGEN-US204429

PATIENT
  Sex: Female

DRUGS (14)
  1. ARANESP [Suspect]
     Indication: RENAL FAILURE CHRONIC
     Dates: start: 20060601
  2. LANTUS [Concomitant]
  3. HUMULIN 70/30 [Concomitant]
  4. ALLEGRA [Concomitant]
  5. LOTENSIN [Concomitant]
  6. TOPROL-XL [Concomitant]
  7. PLAVIX [Concomitant]
  8. QUININE SULFATE [Concomitant]
  9. IBUPROFEN [Concomitant]
  10. ASPIRIN [Concomitant]
  11. TYLENOL [Concomitant]
  12. LORAZEPAM [Concomitant]
     Route: 050
  13. PROTONIX [Concomitant]
  14. UNSPECIFIED DIURETIC [Concomitant]

REACTIONS (5)
  - ABSCESS RUPTURE [None]
  - ARTHRALGIA [None]
  - FATIGUE [None]
  - INFLUENZA [None]
  - INFLUENZA LIKE ILLNESS [None]
